FAERS Safety Report 19506168 (Version 1)
Quarter: 2021Q3

REPORT INFORMATION
  Report Type: Spontaneous
  Country: US (occurrence: US)
  Receive Date: 20210708
  Receipt Date: 20210708
  Transmission Date: 20211014
  Serious: No
  Sender: FDA-Public Use
  Company Number: US-SUN PHARMACEUTICAL INDUSTRIES LTD-2021R1-285909

PATIENT
  Sex: Male

DRUGS (2)
  1. TESTOSTERONE. [Suspect]
     Active Substance: TESTOSTERONE
     Indication: BLOOD TESTOSTERONE DECREASED
     Dosage: 1 ML EVERY 2 WEEKS
     Route: 065
     Dates: start: 2021
  2. TESTOSTERONE. [Suspect]
     Active Substance: TESTOSTERONE
     Indication: ASTHENIA
     Dosage: 1 ML EVERY 2 WEEKS
     Route: 065
     Dates: start: 2021

REACTIONS (2)
  - Incorrect dose administered by product [Unknown]
  - Product deposit [Unknown]

NARRATIVE: CASE EVENT DATE: 2021
